FAERS Safety Report 16048420 (Version 1)
Quarter: 2019Q1

REPORT INFORMATION
  Report Type: Spontaneous
  Country: CA (occurrence: CA)
  Receive Date: 20190307
  Receipt Date: 20190307
  Transmission Date: 20190418
  Serious: Yes (Disabling)
  Sender: FDA-Public Use
  Company Number: CA-TEVA-2019-CA-1008238

PATIENT
  Age: 48 Year
  Sex: Female
  Weight: 140 kg

DRUGS (9)
  1. ACETAMINOPHEN. [Concomitant]
     Active Substance: ACETAMINOPHEN
     Dosage: TAKE 2 TABLETS 4 TIMES A DAY REGULARLY
     Dates: start: 20181219, end: 20190222
  2. TRAZODONE [Suspect]
     Active Substance: TRAZODONE HYDROCHLORIDE
     Indication: SLEEP DISORDER
     Dosage: 50 MILLIGRAM DAILY; AT BEDTIME FOR 2 CONSECUTIVE NIGHTS (JANUARY 28 AND 29, 2019)
     Route: 065
     Dates: start: 20190128
  3. JAMP ATENOLOL [Concomitant]
     Indication: BLOOD PRESSURE MEASUREMENT
     Dosage: 1 TABLET DAILY WITH BREAKFAST REGULARLY
     Dates: start: 20181219, end: 20190214
  4. TEVA FUROSEMIDE [Concomitant]
     Dosage: 1 TABLET PER DAY WITH BREAKFAST
     Dates: start: 20181219, end: 20190214
  5. NRA-PANTOPRAZOLE [Concomitant]
     Dosage: TAKE 1 TABLET 30 MINUTES BEFORE BREAKFAST
     Dates: start: 20180711, end: 20190222
  6. TEVA ALPRAZOLAM [Concomitant]
     Active Substance: ALPRAZOLAM
     Dosage: 1 TABLET ONCE A DAY AT BEDTIME
     Dates: start: 20190218, end: 20190218
  7. TEVA CLONIDINE [Concomitant]
     Active Substance: CLONIDINE
     Indication: FLUSHING
     Dosage: HALF TABLET 2 TIMES A DAY
     Dates: start: 20190128, end: 20190128
  8. VYVANSE [Concomitant]
     Active Substance: LISDEXAMFETAMINE DIMESYLATE
     Dosage: 40 MILLIGRAM DAILY;
     Dates: start: 20181002, end: 20190222
  9. JAMP FOSFOMYCIN [Concomitant]
     Dates: start: 20181101, end: 20190222

REACTIONS (4)
  - Paraesthesia oral [Not Recovered/Not Resolved]
  - Peripheral swelling [Unknown]
  - Lip swelling [Not Recovered/Not Resolved]
  - Erythema [Unknown]

NARRATIVE: CASE EVENT DATE: 20190128
